FAERS Safety Report 6298653-9 (Version None)
Quarter: 2009Q3

REPORT INFORMATION
  Report Type: 
  Country: None (occurrence: None)
  Receive Date: 20090804
  Receipt Date: 20090720
  Transmission Date: 20100115
  Serious: Yes (Hospitalization)
  Sender: FDA-Public Use
  Company Number: ADE2009-0762

PATIENT
  Age: 40 Year
  Sex: Male
  Weight: 79.3795 kg

DRUGS (5)
  1. ZIDOVUDINE [Suspect]
     Indication: HIV INFECTION
     Dosage: 300MG - BID - ORAL
     Route: 048
     Dates: start: 20080513
  2. DARUNAVIR TABLETS [Suspect]
     Indication: HIV INFECTION
     Dosage: 600MG - BID - ORAL
     Route: 048
     Dates: start: 20080513
  3. TRUVADA [Suspect]
     Indication: HIV INFECTION
     Dosage: 500MG -DAILY -ORAL
     Route: 048
     Dates: start: 20080513
  4. RITONAVIR [Suspect]
     Indication: HIV INFECTION
     Dosage: 100MG- BID - ORAL
     Route: 048
     Dates: start: 20080513
  5. BACTRIM [Concomitant]

REACTIONS (12)
  - CHEST PAIN [None]
  - CHEST X-RAY ABNORMAL [None]
  - CHILLS [None]
  - COUGH [None]
  - DIARRHOEA [None]
  - DIZZINESS [None]
  - DYSPNOEA [None]
  - FATIGUE [None]
  - NAUSEA [None]
  - PRODUCTIVE COUGH [None]
  - PYREXIA [None]
  - VOMITING [None]
